FAERS Safety Report 6699151-0 (Version None)
Quarter: 2010Q2

REPORT INFORMATION
  Report Type: 
  Country: None (occurrence: None)
  Receive Date: 20100427
  Receipt Date: 20100413
  Transmission Date: 20101027
  Serious: Yes (Hospitalization)
  Sender: FDA-Public Use
  Company Number: FR-MYLANLABS-2010S1006225

PATIENT
  Age: 10 Year
  Sex: Male

DRUGS (6)
  1. CLARITHROMYCIN [Suspect]
     Indication: RESPIRATORY TRACT INFECTION
     Route: 065
  2. OXCARBAZEPINE [Interacting]
     Indication: EPILEPSY
     Dosage: 540MG IN THE MORNING, 510MG AT NIGHT
     Route: 065
  3. OXCARBAZEPINE [Interacting]
     Dosage: 540MG IN THE MORNING, 510MG AT NIGHT
     Route: 065
  4. LAMOTRIGINE [Concomitant]
     Indication: EPILEPSY
     Route: 065
  5. VALPROIC ACID [Concomitant]
     Indication: EPILEPSY
     Dosage: 100MG IN THE MORNING, 300MG
     Route: 065
  6. TOPIRAMATE [Concomitant]
     Indication: EPILEPSY
     Route: 065

REACTIONS (8)
  - ATAXIA [None]
  - DIZZINESS [None]
  - DRUG INTERACTION [None]
  - HYPERKINESIA [None]
  - NYSTAGMUS [None]
  - SOMNOLENCE [None]
  - THERAPEUTIC AGENT TOXICITY [None]
  - VOMITING [None]
